FAERS Safety Report 19793602 (Version 1)
Quarter: 2021Q3

REPORT INFORMATION
  Report Type: Spontaneous
  Country: US (occurrence: US)
  Receive Date: 20210907
  Receipt Date: 20210907
  Transmission Date: 20211014
  Serious: Yes (Other)
  Sender: FDA-Public Use
  Company Number: US-SA-2021SA292238

PATIENT
  Age: 64 Year
  Sex: Male

DRUGS (1)
  1. ZANTAC [Suspect]
     Active Substance: RANITIDINE HYDROCHLORIDE
     Indication: DYSPEPSIA
     Dosage: 300 MG, FREQUENCY: OCCASIONAL
     Dates: start: 201407, end: 201804

REACTIONS (3)
  - Throat cancer [Unknown]
  - Head and neck cancer [Unknown]
  - Tongue neoplasm malignant stage unspecified [Unknown]

NARRATIVE: CASE EVENT DATE: 20180401
